FAERS Safety Report 9287630 (Version 2)
Quarter: 2013Q2

REPORT INFORMATION
  Report Type: Spontaneous
  Country: FR (occurrence: FR)
  Receive Date: 20130514
  Receipt Date: 20130514
  Transmission Date: 20140414
  Serious: Yes (Hospitalization)
  Sender: FDA-Public Use
  Company Number: FR-ACCORD-017560

PATIENT
  Age: 31 Year
  Sex: Female

DRUGS (4)
  1. LOXAPINE [Suspect]
     Indication: HALLUCINATIONS, MIXED
     Route: 030
  2. CLORAZEPATE DIPOTASSIUM [Suspect]
     Indication: HALLUCINATIONS, MIXED
     Route: 042
  3. HALOPERIDOL [Suspect]
     Indication: HALLUCINATIONS, MIXED
  4. CLONAZEPAM [Suspect]
     Indication: HALLUCINATIONS, MIXED
     Route: 042

REACTIONS (2)
  - Neuroleptic malignant syndrome [Unknown]
  - Off label use [Unknown]
